FAERS Safety Report 7865360-8 (Version None)
Quarter: 2011Q4

REPORT INFORMATION
  Report Type: 
  Country: None (occurrence: None)
  Receive Date: 20111028
  Receipt Date: 20101203
  Transmission Date: 20120403
  Serious: No
  Sender: FDA-Public Use
  Company Number: US-GLAXOSMITHKLINE-A0897664A

PATIENT
  Age: 54 Year
  Sex: Female

DRUGS (2)
  1. NO CONCURRENT MEDICATION [Concomitant]
  2. ADVAIR DISKUS 100/50 [Suspect]
     Indication: ASTHMA
     Dosage: 1PUFF PER DAY
     Route: 055
     Dates: start: 20050101

REACTIONS (6)
  - MUCOUS MEMBRANE DISORDER [None]
  - DYSPHONIA [None]
  - SPUTUM INCREASED [None]
  - TREMOR [None]
  - THROAT IRRITATION [None]
  - DRY THROAT [None]
